FAERS Safety Report 8774356 (Version 3)
Quarter: 2012Q4

REPORT INFORMATION
  Report Type: Report from Study
  Country: CA (occurrence: CA)
  Receive Date: 20120907
  Receipt Date: 20121126
  Transmission Date: 20130627
  Serious: Yes (Hospitalization)
  Sender: FDA-Public Use
  Company Number: CA-UCBSA-064661

PATIENT
  Age: 42 Year
  Sex: Female

DRUGS (14)
  1. CERTOLIZUMAB PEGOL [Suspect]
     Indication: RHEUMATOID ARTHRITIS
     Dosage: NO OF DOSES RECEIVED: 1
     Route: 058
     Dates: start: 20120815, end: 20120824
  2. CERTOLIZUMAB PEGOL [Suspect]
     Indication: RHEUMATOID ARTHRITIS
     Dosage: NO OF DOSES RECEIVED: 3
     Route: 058
     Dates: start: 20120704, end: 20120801
  3. NORTRIPTYLINE [Concomitant]
  4. NORTRIPTYLINE [Concomitant]
     Dosage: AT BEDTIME
     Route: 048
     Dates: start: 20120826
  5. SYMBICORT [Concomitant]
  6. SYMBICORT [Concomitant]
     Dosage: 200 ; 1 PUFF
  7. TRI-CYCLEN [Concomitant]
  8. DOCUSATE [Concomitant]
  9. LEFLUNOMIDE [Concomitant]
  10. LORAZEPAM [Concomitant]
  11. LORAZEPAM [Concomitant]
     Dosage: 1-2 TABS AS REQUIRED
     Route: 048
     Dates: start: 20120828, end: 20120904
  12. ZOVIRAX [Concomitant]
  13. HYDROXYQUINE [Concomitant]
  14. PREDNISONE [Concomitant]

REACTIONS (2)
  - Pneumonia [Recovered/Resolved]
  - Bacteraemia [Recovered/Resolved]
